FAERS Safety Report 6389572-8 (Version None)
Quarter: 2009Q4

REPORT INFORMATION
  Report Type: 
  Country: None (occurrence: None)
  Receive Date: 20091006
  Receipt Date: 20090925
  Transmission Date: 20100525
  Serious: Yes (Hospitalization)
  Sender: FDA-Public Use
  Company Number: CZ-AMGEN-US367316

PATIENT
  Age: 40 Year
  Sex: Male

DRUGS (5)
  1. ENBREL [Suspect]
     Indication: PSORIASIS
     Route: 058
     Dates: start: 20040101, end: 20090918
  2. ENBREL [Suspect]
     Indication: PSORIATIC ARTHROPATHY
  3. METHOTREXATE [Concomitant]
     Indication: PSORIATIC ARTHROPATHY
     Dosage: 2-0-2, 2.5 MG TABLET
     Route: 048
  4. NIMESULIDE [Concomitant]
     Indication: PSORIATIC ARTHROPATHY
     Dosage: UNSPECIFIED
     Route: 065
  5. MESTINON [Concomitant]
     Dosage: 2-2-2, 60 MG TABLET
     Route: 048

REACTIONS (2)
  - DISEASE PROGRESSION [None]
  - MYASTHENIA GRAVIS [None]
